FAERS Safety Report 10622282 (Version 1)
Quarter: 2014Q4

REPORT INFORMATION
  Report Type: Spontaneous
  Country: US (occurrence: None)
  Receive Date: 20141201
  Receipt Date: 20141201
  Transmission Date: 20150529
  Serious: Yes (Other)
  Sender: FDA-Public Use
  Company Number: None

PATIENT
  Age: 28 Year
  Sex: Female

DRUGS (1)
  1. PROGESTERONE (IN SESAME OIL) (WATSON LABORATORIES) [Suspect]
     Active Substance: PROGESTERONE
     Indication: PREGNANCY
     Route: 030
     Dates: start: 20141125, end: 20141128

REACTIONS (2)
  - Urticaria [None]
  - Product quality issue [None]

NARRATIVE: CASE EVENT DATE: 20141128
